FAERS Safety Report 5550670-X (Version None)
Quarter: 2007Q4

REPORT INFORMATION
  Report Type: 
  Country: None (occurrence: None)
  Receive Date: 20071212
  Receipt Date: 20070508
  Transmission Date: 20080405
  Serious: No
  Sender: FDA-Public Use
  Company Number: US-AMGEN-KDL223870

PATIENT
  Sex: Female

DRUGS (3)
  1. ENBREL [Suspect]
     Indication: RHEUMATOID ARTHRITIS
     Route: 058
     Dates: start: 20061009, end: 20070506
  2. PLAQUENIL [Concomitant]
     Dates: start: 20010101
  3. METHOTREXATE [Concomitant]
     Dates: start: 20010101

REACTIONS (2)
  - PHARYNGITIS [None]
  - STREPTOCOCCAL INFECTION [None]
